FAERS Safety Report 7781219-9 (Version None)
Quarter: 2011Q3

REPORT INFORMATION
  Report Type: 
  Country: None (occurrence: None)
  Receive Date: 20110927
  Receipt Date: 20110919
  Transmission Date: 20111222
  Serious: Yes (Hospitalization)
  Sender: FDA-Public Use
  Company Number: DK-GLAXOSMITHKLINE-B0750240A

PATIENT
  Sex: Female

DRUGS (2)
  1. ALLI [Suspect]
     Indication: WEIGHT DECREASED
     Route: 048
  2. ETHINYL ESTRADIOL [Suspect]
     Indication: CONTRACEPTION
     Route: 048

REACTIONS (3)
  - DRUG INTERACTION [None]
  - ECTOPIC PREGNANCY [None]
  - PREGNANCY ON ORAL CONTRACEPTIVE [None]
